FAERS Safety Report 5394917-1 (Version None)
Quarter: 2007Q3

REPORT INFORMATION
  Report Type: 
  Country: None (occurrence: None)
  Receive Date: 20070720
  Receipt Date: 20070710
  Transmission Date: 20080115
  Serious: Yes (Hospitalization)
  Sender: FDA-Public Use
  Company Number: 060003L07JPN

PATIENT
  Age: 27 Year
  Sex: Female

DRUGS (2)
  1. CLOMID [Suspect]
     Indication: IN VITRO FERTILISATION
  2. HUMEGON [Suspect]
     Indication: IN VITRO FERTILISATION

REACTIONS (2)
  - ABORTION SPONTANEOUS [None]
  - OVARIAN HYPERSTIMULATION SYNDROME [None]
